FAERS Safety Report 12302815 (Version 5)
Quarter: 2016Q2

REPORT INFORMATION
  Report Type: Report from Study
  Country: JP (occurrence: JP)
  Receive Date: 20160426
  Receipt Date: 20160524
  Transmission Date: 20160815
  Serious: Yes (Death, Hospitalization)
  Sender: FDA-Public Use
  Company Number: JP-ROCHE-1745866

PATIENT
  Age: 65 Year
  Sex: Male
  Weight: 73 kg

DRUGS (7)
  1. DOCETAXEL. [Suspect]
     Active Substance: DOCETAXEL
     Indication: SALIVARY GLAND CANCER
     Dosage: DOCETAXEL HYDRATE
     Route: 041
     Dates: start: 20160202, end: 20160405
  2. INSULIN HUMAN [Concomitant]
     Active Substance: INSULIN HUMAN
     Indication: DIABETIC NEPHROPATHY
     Dosage: FOR EIGHT HOURS?THE FRACTIONATION DOSE FREQUENCY IS UNCERTAIN. ?DOSE INTERVAL UNCERTAINTY
     Route: 042
  3. INSULIN DEGLUDEC [Concomitant]
     Active Substance: INSULIN DEGLUDEC
     Indication: DIABETIC NEPHROPATHY
     Route: 058
     Dates: end: 20160410
  4. DECADRON [Concomitant]
     Active Substance: DEXAMETHASONE
     Route: 065
     Dates: start: 20160202, end: 20160405
  5. TRASTUZUMAB [Suspect]
     Active Substance: TRASTUZUMAB
     Indication: SALIVARY GLAND CANCER
     Route: 041
     Dates: start: 20160202, end: 20160202
  6. TRASTUZUMAB [Suspect]
     Active Substance: TRASTUZUMAB
     Route: 041
     Dates: start: 20160223, end: 20160405
  7. INSULIN ASPART [Concomitant]
     Active Substance: INSULIN ASPART
     Indication: DIABETIC NEPHROPATHY
     Dosage: DOSAGE IS UNCERTAIN. ?SLIDING SCALE USE?PROPERLY
     Route: 058

REACTIONS (4)
  - Hypoalbuminaemia [Fatal]
  - Anaemia [Not Recovered/Not Resolved]
  - Pleural effusion [Fatal]
  - Respiratory failure [Fatal]

NARRATIVE: CASE EVENT DATE: 20160410
